FAERS Safety Report 23094494 (Version 1)
Quarter: 2023Q4

REPORT INFORMATION
  Report Type: Spontaneous
  Country: US (occurrence: US)
  Receive Date: 20231023
  Receipt Date: 20231023
  Transmission Date: 20240110
  Serious: No
  Sender: FDA-Public Use
  Company Number: US-TEVA-2023-US-2933312

PATIENT
  Age: 76 Year
  Sex: Female

DRUGS (2)
  1. CARBIDOPA\LEVODOPA [Suspect]
     Active Substance: CARBIDOPA\LEVODOPA
     Indication: Parkinson^s disease
     Dosage: 25-100 MG-MG
     Route: 065
     Dates: start: 2008
  2. CARBIDOPA\LEVODOPA [Suspect]
     Active Substance: CARBIDOPA\LEVODOPA
     Dosage: 25-100 MG-MG
     Route: 065
     Dates: start: 2021

REACTIONS (3)
  - General physical health deterioration [Not Recovered/Not Resolved]
  - Eye disorder [Not Recovered/Not Resolved]
  - Adverse drug reaction [Unknown]
